FAERS Safety Report 6159939-1 (Version None)
Quarter: 2009Q2

REPORT INFORMATION
  Report Type: 
  Country: None (occurrence: None)
  Receive Date: 20090415
  Receipt Date: 20090409
  Transmission Date: 20091009
  Serious: Yes (Hospitalization)
  Sender: FDA-Public Use
  Company Number: 2009SP007118

PATIENT
  Age: 65 Year
  Sex: Female

DRUGS (2)
  1. REBETOL [Suspect]
     Indication: HEPATITIS C
     Dosage: 200 MG; BID; PO
     Route: 048
     Dates: start: 20080301, end: 20090310
  2. PEGASYS (CON.) [Concomitant]

REACTIONS (10)
  - ABDOMINAL PAIN [None]
  - ANAEMIA [None]
  - DIVERTICULUM INTESTINAL [None]
  - HIATUS HERNIA [None]
  - NAUSEA [None]
  - OESOPHAGITIS ULCERATIVE [None]
  - PLATELET COUNT DECREASED [None]
  - REFLUX OESOPHAGITIS [None]
  - VOMITING [None]
  - WHITE BLOOD CELL COUNT DECREASED [None]
